FAERS Safety Report 8244759-4 (Version None)
Quarter: 2012Q1

REPORT INFORMATION
  Report Type: 
  Country: None (occurrence: None)
  Receive Date: 20120329
  Receipt Date: 20110321
  Transmission Date: 20120608
  Serious: No
  Sender: FDA-Public Use
  Company Number: US-MYLANLABS-2011S1006044

PATIENT
  Age: 32 Year
  Sex: Female

DRUGS (3)
  1. FENTANYL-100 [Suspect]
     Indication: PAIN
     Dosage: CHANGED Q48H
     Route: 062
     Dates: start: 20100101
  2. TIZANIDINE HCL [Concomitant]
     Indication: MUSCLE SPASMS
  3. CLONAZEPAM [Concomitant]
     Indication: ANXIETY

REACTIONS (2)
  - COUGH [None]
  - DRUG WITHDRAWAL SYNDROME [None]
